FAERS Safety Report 11774686 (Version 3)
Quarter: 2015Q4

REPORT INFORMATION
  Report Type: Report from Study
  Country: DE (occurrence: DE)
  Receive Date: 20151124
  Receipt Date: 20151204
  Transmission Date: 20160304
  Serious: Yes (Death)
  Sender: FDA-Public Use
  Company Number: DE-ABBVIE-15P-062-1507058-00

PATIENT
  Age: 50 Year
  Sex: Male
  Weight: 70 kg

DRUGS (3)
  1. EXVIERA [Suspect]
     Active Substance: DASABUVIR
     Indication: HEPATITIS C
     Route: 048
     Dates: start: 20150709, end: 20151004
  2. SALBUTAMOL [Concomitant]
     Active Substance: ALBUTEROL
     Indication: PRODUCT USED FOR UNKNOWN INDICATION
     Dates: start: 20150918, end: 20150921
  3. VIEKIRAX [Suspect]
     Active Substance: OMBITASVIR\PARITAPREVIR\RITONAVIR
     Indication: HEPATITIS C
     Route: 048
     Dates: start: 20150709, end: 20151004

REACTIONS (2)
  - Gastrointestinal disorder [Recovered/Resolved]
  - Myocardial infarction [Fatal]

NARRATIVE: CASE EVENT DATE: 20150917
